FAERS Safety Report 17542429 (Version 4)
Quarter: 2020Q2

REPORT INFORMATION
  Report Type: Report from Study
  Country: US (occurrence: US)
  Receive Date: 20200314
  Receipt Date: 20200615
  Transmission Date: 20200713
  Serious: Yes (Hospitalization)
  Sender: FDA-Public Use
  Company Number: US-ACTELION-A-NJ2020-202609

PATIENT
  Age: 44 Year
  Sex: Female
  Weight: 99.77 kg

DRUGS (7)
  1. ADEMPAS [Concomitant]
     Active Substance: RIOCIGUAT
     Dosage: 2 MG, TID
     Route: 065
  2. UPTRAVI [Concomitant]
     Active Substance: SELEXIPAG
     Indication: PULMONARY ARTERIAL HYPERTENSION
     Route: 048
  3. REMODULIN [Suspect]
     Active Substance: TREPROSTINIL
     Dosage: 30 NG/KG, PER MIN
     Route: 065
  4. ADEMPAS [Concomitant]
     Active Substance: RIOCIGUAT
     Dosage: 2.5 MG, TID
     Route: 065
  5. OPSUMIT [Suspect]
     Active Substance: MACITENTAN
     Indication: PULMONARY ARTERIAL HYPERTENSION
     Dosage: 10 MG, QD
     Route: 048
  6. ZOFRAN [Suspect]
     Active Substance: ONDANSETRON HYDROCHLORIDE
     Indication: PRODUCT USED FOR UNKNOWN INDICATION
     Route: 065
  7. REMODULIN [Suspect]
     Active Substance: TREPROSTINIL
     Indication: PRODUCT USED FOR UNKNOWN INDICATION
     Dosage: 31 NG/KG, PER MIN
     Route: 065
     Dates: start: 20200525

REACTIONS (16)
  - Pyrexia [Unknown]
  - Vomiting [Unknown]
  - Nausea [Unknown]
  - Blood pressure decreased [Unknown]
  - Mucous stools [Unknown]
  - Flushing [Unknown]
  - Pain in extremity [Unknown]
  - Urinary tract infection [Unknown]
  - Device dislocation [Unknown]
  - Fatigue [Unknown]
  - Decreased appetite [Unknown]
  - Defaecation urgency [Unknown]
  - Dyspnoea exertional [Recovering/Resolving]
  - Central venous catheterisation [Unknown]
  - Haematochezia [Unknown]
  - Frequent bowel movements [Unknown]

NARRATIVE: CASE EVENT DATE: 20200227
